FAERS Safety Report 5943853-8 (Version None)
Quarter: 2008Q4

REPORT INFORMATION
  Report Type: 
  Country: None (occurrence: None)
  Receive Date: 20081106
  Receipt Date: 20081024
  Transmission Date: 20090506
  Serious: Yes (Hospitalization)
  Sender: FDA-Public Use
  Company Number: SE-ELI_LILLY_AND_COMPANY-SE200810005864

PATIENT
  Sex: Female

DRUGS (2)
  1. FORTEO [Suspect]
     Indication: OSTEOPOROSIS
     Dosage: 20 UG, DAILY (1/D)
     Route: 058
     Dates: start: 20070724, end: 20070724
  2. OXYCONTIN [Concomitant]
     Indication: PAIN
     Dosage: 5 MG, 3/D
     Dates: start: 20080724, end: 20080724

REACTIONS (3)
  - FALL [None]
  - HIP FRACTURE [None]
  - RADIUS FRACTURE [None]
